FAERS Safety Report 7983422-1 (Version None)
Quarter: 2011Q4

REPORT INFORMATION
  Report Type: 
  Country: None (occurrence: None)
  Receive Date: 20111215
  Receipt Date: 20111212
  Transmission Date: 20120403
  Serious: Yes (Death, Other)
  Sender: FDA-Public Use
  Company Number: PHHY2011BR099862

PATIENT
  Sex: Male

DRUGS (7)
  1. CALSAN [Suspect]
     Indication: HAEMODIALYSIS
     Dosage: 500 MG, BID
     Route: 065
  2. ASCORBIC ACID [Concomitant]
     Dosage: 250 MG, QD
     Route: 048
  3. CALCITRIOL [Concomitant]
     Route: 048
  4. MORPHINE [Concomitant]
     Indication: PAIN
     Route: 048
  5. LASIX [Concomitant]
     Indication: HYPERTENSION
     Route: 048
  6. VITAMIN B COMPLEX CAP [Concomitant]
     Route: 048
  7. VITAMIN B COMPLEX CAP [Concomitant]

REACTIONS (7)
  - MULTI-ORGAN FAILURE [None]
  - PROSTATE CANCER [None]
  - COMA [None]
  - RENAL FAILURE CHRONIC [None]
  - ANAEMIA [None]
  - URINARY TRACT INFECTION [None]
  - COLON CANCER METASTATIC [None]
